FAERS Safety Report 7152052-6 (Version None)
Quarter: 2010Q4

REPORT INFORMATION
  Report Type: 
  Country: None (occurrence: None)
  Receive Date: 20101212
  Receipt Date: 20101129
  Transmission Date: 20110411
  Serious: Yes (Life-Threatening, Hospitalization)
  Sender: FDA-Public Use
  Company Number: DE-MYLANLABS-2009S1004849

PATIENT
  Age: 52 Year
  Sex: Male

DRUGS (17)
  1. BACLOFEN [Suspect]
     Indication: MUSCLE SPASTICITY
     Route: 048
  2. CARBAMAZEPINE [Interacting]
     Indication: EPILEPSY
     Route: 048
  3. DIPIPERON [Interacting]
     Indication: CEREBROVASCULAR ACCIDENT
     Route: 048
     Dates: end: 20090116
  4. ANTELEPSIN [Interacting]
     Indication: EPILEPSY
     Route: 048
     Dates: start: 20081112, end: 20090116
  5. TRAMAL [Interacting]
     Indication: BACK PAIN
     Route: 048
  6. LYRICA [Interacting]
     Indication: ANXIETY DISORDER
     Route: 048
     Dates: start: 20081001, end: 20090115
  7. TOREM /01036501/ [Concomitant]
     Indication: RENAL IMPAIRMENT
     Route: 048
  8. CAPTOPRIL AND HYDROCHLOROTHIAZIDE [Concomitant]
     Indication: CARDIAC FAILURE
     Route: 048
  9. BEZAFIBRATE [Concomitant]
     Indication: METABOLIC SYNDROME
     Route: 048
  10. AGGRENOX [Concomitant]
     Indication: CEREBROVASCULAR ACCIDENT
     Route: 048
     Dates: start: 19950101
  11. SPIRONO [Concomitant]
     Indication: CARDIAC FAILURE
     Route: 048
  12. TAMSULOSIN [Concomitant]
     Indication: BENIGN PROSTATIC HYPERPLASIA
     Route: 048
  13. IMBUN /00109201/ [Concomitant]
     Indication: BACK PAIN
     Route: 048
  14. MOVICOL [Concomitant]
     Indication: CONSTIPATION
     Route: 048
  15. METAMIZOLE [Concomitant]
     Indication: BACK PAIN
     Route: 048
  16. INSULIN [Concomitant]
     Indication: TYPE 2 DIABETES MELLITUS
     Route: 058
  17. PANTOZOL [Concomitant]
     Indication: PROPHYLAXIS AGAINST GASTROINTESTINAL ULCER
     Route: 048

REACTIONS (4)
  - DRUG INTERACTION [None]
  - PLEURAL EFFUSION [None]
  - RESPIRATORY FAILURE [None]
  - SOMNOLENCE [None]
